FAERS Safety Report 10472329 (Version 1)
Quarter: 2014Q3

REPORT INFORMATION
  Report Type: Spontaneous
  Country: US (occurrence: None)
  Receive Date: 20140922
  Receipt Date: 20140922
  Transmission Date: 20150326
  Serious: Yes (Hospitalization, Other)
  Sender: FDA-Public Use
  Company Number: 2014SCAL000105

PATIENT
  Age: 39 Year
  Sex: Male

DRUGS (3)
  1. VALPROIC ACID. [Concomitant]
     Active Substance: VALPROIC ACID
  2. LAMOTRIGINE (LAMOTRIGINE) TABLET [Suspect]
     Active Substance: LAMOTRIGINE
     Indication: EPILEPSY
     Dates: start: 2006, end: 2009
  3. PHENYTOIN. [Concomitant]
     Active Substance: PHENYTOIN

REACTIONS (5)
  - Status epilepticus [None]
  - Joint swelling [None]
  - Erythema [None]
  - Lupus-like syndrome [None]
  - Arthralgia [None]
